FAERS Safety Report 19172252 (Version 1)
Quarter: 2021Q2

REPORT INFORMATION
  Report Type: Spontaneous
  Country: US (occurrence: US)
  Receive Date: 20210423
  Receipt Date: 20210423
  Transmission Date: 20210717
  Serious: No
  Sender: FDA-Public Use
  Company Number: US-TEVA-2021-US-1901644

PATIENT
  Sex: Female

DRUGS (1)
  1. MONTELUKAST SODIUM TEVA [Suspect]
     Active Substance: MONTELUKAST SODIUM
     Route: 065
     Dates: end: 202104

REACTIONS (5)
  - Dyskinesia [Not Recovered/Not Resolved]
  - Memory impairment [Unknown]
  - Anxiety [Unknown]
  - Irritability [Unknown]
  - Tremor [Not Recovered/Not Resolved]
